FAERS Safety Report 8279044-8 (Version None)
Quarter: 2012Q2

REPORT INFORMATION
  Report Type: 
  Country: None (occurrence: None)
  Receive Date: 20120412
  Receipt Date: 20120119
  Transmission Date: 20120825
  Serious: No
  Sender: FDA-Public Use
  Company Number: US-ASTRAZENECA-2012SE04172

PATIENT
  Age: 32 Year
  Sex: Male

DRUGS (3)
  1. CELEXA [Concomitant]
  2. LOSARTAN POTASSIUM [Concomitant]
  3. NEXIUM [Suspect]
     Route: 048

REACTIONS (7)
  - LACTOSE INTOLERANCE [None]
  - SLEEP APNOEA SYNDROME [None]
  - DIARRHOEA [None]
  - CONSTIPATION [None]
  - BOWEL MOVEMENT IRREGULARITY [None]
  - GASTROOESOPHAGEAL REFLUX DISEASE [None]
  - ABDOMINAL PAIN [None]
